FAERS Safety Report 19792969 (Version 1)
Quarter: 2021Q3

REPORT INFORMATION
  Report Type: Report from Study
  Country: CA (occurrence: CA)
  Receive Date: 20210906
  Receipt Date: 20210906
  Transmission Date: 20211014
  Serious: Yes (Other)
  Sender: FDA-Public Use
  Company Number: CA-TAKEDA-2020TUS018329

PATIENT
  Age: 75 Year
  Sex: Male

DRUGS (6)
  1. ASACOL [Concomitant]
     Active Substance: MESALAMINE
     Dosage: 4.8 GRAM, QD
  2. VEDOLIZUMAB [Suspect]
     Active Substance: VEDOLIZUMAB
     Indication: COLITIS ULCERATIVE
     Dosage: 300 MILLIGRAM
     Route: 042
     Dates: start: 20191106
  3. VEDOLIZUMAB [Suspect]
     Active Substance: VEDOLIZUMAB
     Dosage: 300 MILLIGRAM, Q4WEEKS
     Route: 042
     Dates: start: 20201104
  4. CORTIMENT [Concomitant]
     Dosage: UNK
  5. VEDOLIZUMAB [Suspect]
     Active Substance: VEDOLIZUMAB
     Dosage: 300 MILLIGRAM
     Route: 042
  6. VEDOLIZUMAB [Suspect]
     Active Substance: VEDOLIZUMAB
     Dosage: 300 MILLIGRAM
     Route: 042

REACTIONS (10)
  - Haematochezia [Unknown]
  - Ageusia [Unknown]
  - Asthenia [Unknown]
  - Decreased appetite [Unknown]
  - Feeling cold [Unknown]
  - Colitis ulcerative [Not Recovered/Not Resolved]
  - Memory impairment [Unknown]
  - Off label use [Unknown]
  - Diarrhoea [Unknown]
  - Weight decreased [Unknown]

NARRATIVE: CASE EVENT DATE: 20201104
